FAERS Safety Report 16667791 (Version 1)
Quarter: 2019Q3

REPORT INFORMATION
  Report Type: Spontaneous
  Country: US (occurrence: US)
  Receive Date: 20190620
  Receipt Date: 20190620
  Transmission Date: 20191004
  Serious: No
  Sender: FDA-Public Use
  Company Number: None

PATIENT
  Sex: Female

DRUGS (1)
  1. HUMIRA [Suspect]
     Active Substance: ADALIMUMAB
     Indication: HIDRADENITIS
     Dosage: 160 MG, 80 MG DAY1, THEN DAY 15 SUBQ?
     Route: 058
     Dates: start: 201905

REACTIONS (3)
  - Hot flush [None]
  - Premature menopause [None]
  - Fatigue [None]
